FAERS Safety Report 8174421-8 (Version None)
Quarter: 2012Q1

REPORT INFORMATION
  Report Type: 
  Country: None (occurrence: None)
  Receive Date: 20120229
  Receipt Date: 20120225
  Transmission Date: 20120608
  Serious: Yes (Death, Hospitalization, Other)
  Sender: FDA-Public Use
  Company Number: BR-ABBOTT-12P-020-0898729-00

PATIENT
  Age: 28 Year
  Sex: Female

DRUGS (3)
  1. AZATHIOPRINE [Concomitant]
     Indication: PRODUCT USED FOR UNKNOWN INDICATION
  2. HUMIRA [Suspect]
     Indication: CROHN'S DISEASE
     Route: 058
  3. UNKNOWN ANTIDEPRESSANT [Concomitant]
     Indication: PRODUCT USED FOR UNKNOWN INDICATION

REACTIONS (13)
  - ASTHENIA [None]
  - VOMITING [None]
  - SEPSIS [None]
  - PYREXIA [None]
  - LUNG INFECTION [None]
  - MENINGITIS TUBERCULOUS [None]
  - NERVOUS SYSTEM DISORDER [None]
  - CONVULSION [None]
  - PNEUMONIA PRIMARY ATYPICAL [None]
  - LISTLESS [None]
  - FUNGAL INFECTION [None]
  - TUBERCULOSIS [None]
  - COUGH [None]
